FAERS Safety Report 16146168 (Version 9)
Quarter: 2022Q3

REPORT INFORMATION
  Report Type: Other
  Country: US (occurrence: None)
  Receive Date: 20190402
  Receipt Date: 20220802
  Transmission Date: 20221026
  Serious: Yes (Hospitalization, Other)
  Sender: FDA-Public Use
  Company Number: US-ROCHE-2193176

PATIENT
  Sex: Female
  Weight: 92.162 kg

DRUGS (33)
  1. OCREVUS [Suspect]
     Active Substance: OCRELIZUMAB
     Indication: Secondary progressive multiple sclerosis
     Dosage: 2ND HALF DOSE 12/OCT/2018
     Route: 042
     Dates: start: 20180928
  2. OCREVUS [Suspect]
     Active Substance: OCRELIZUMAB
     Dosage: INFUSE 600 MG EVERY 6 MONTHS?ANTICIPATED DATE OF TREATMENT: 06/DEC/2021, LAST TREATMENT DATE: 04/JUN
     Route: 042
     Dates: start: 201704
  3. OCREVUS [Suspect]
     Active Substance: OCRELIZUMAB
     Route: 042
     Dates: start: 2017
  4. SOLU-MEDROL [Suspect]
     Active Substance: METHYLPREDNISOLONE SODIUM SUCCINATE
     Indication: Product used for unknown indication
     Route: 065
  5. SPIRONOLACTONE [Suspect]
     Active Substance: SPIRONOLACTONE
     Indication: Hypertension
     Route: 048
     Dates: start: 2010, end: 201904
  6. COVID-19 VACCINE NOS [Suspect]
     Active Substance: COVID-19 VACCINE NOS
     Indication: Product used for unknown indication
     Route: 065
  7. CYMBALTA [Concomitant]
     Active Substance: DULOXETINE HYDROCHLORIDE
  8. LISINOPRIL [Concomitant]
     Active Substance: LISINOPRIL
  9. FUROSEMIDE [Concomitant]
     Active Substance: FUROSEMIDE
  10. SODIUM BICARBONATE [Concomitant]
     Active Substance: SODIUM BICARBONATE
  11. AMLODIPINE BESYLATE [Concomitant]
     Active Substance: AMLODIPINE BESYLATE
  12. ESOMEPRAZOLE [Concomitant]
     Active Substance: ESOMEPRAZOLE
  13. MONTELUKAST SODIUM [Concomitant]
     Active Substance: MONTELUKAST SODIUM
  14. GABAPENTIN [Concomitant]
     Active Substance: GABAPENTIN
  15. BACLOFEN [Concomitant]
     Active Substance: BACLOFEN
  16. DULOXETINE [Concomitant]
     Active Substance: DULOXETINE
  17. METFORMIN [Concomitant]
     Active Substance: METFORMIN HYDROCHLORIDE
  18. ATORVASTATIN [Concomitant]
     Active Substance: ATORVASTATIN
  19. TEMAZEPAM [Concomitant]
     Active Substance: TEMAZEPAM
  20. VITAMIN D3 [Concomitant]
     Active Substance: CHOLECALCIFEROL
  21. LACTOBACILLUS ACIDOPHILUS [Concomitant]
     Active Substance: LACTOBACILLUS ACIDOPHILUS
  22. DICYCLOMINE [Concomitant]
     Active Substance: DICYCLOMINE HYDROCHLORIDE
  23. ALBUTEROL [Concomitant]
     Active Substance: ALBUTEROL
  24. MOMETASONE [Concomitant]
     Active Substance: MOMETASONE
  25. IPRATROPIUM BROMIDE [Concomitant]
     Active Substance: IPRATROPIUM BROMIDE
  26. ASPIRIN [Concomitant]
     Active Substance: ASPIRIN
     Dates: start: 2012
  27. SPIRIVA RESPIMAT [Concomitant]
     Active Substance: TIOTROPIUM BROMIDE
     Indication: Dyspnoea
     Dosage: 2 PUFFS; ONGOING YES
     Route: 055
     Dates: start: 20200605
  28. FERROUS SULFATE [Concomitant]
     Active Substance: FERROUS SULFATE
     Indication: Iron deficiency
     Dosage: ONGOING YES
     Route: 048
     Dates: start: 202006
  29. PROAIR HFA [Concomitant]
     Active Substance: ALBUTEROL SULFATE
     Indication: Dyspnoea
     Dosage: RESCUE INHALER; ONGOING YES
     Route: 065
     Dates: start: 2010
  30. LEXAPRO [Concomitant]
     Active Substance: ESCITALOPRAM OXALATE
     Indication: Pain
     Dosage: ONGOING NO
     Route: 048
     Dates: start: 2001
  31. LEXAPRO [Concomitant]
     Active Substance: ESCITALOPRAM OXALATE
     Indication: Depression
  32. LASIX [Concomitant]
     Active Substance: FUROSEMIDE
     Indication: Joint swelling
     Dosage: ONGOING YES
     Route: 048
     Dates: start: 2019
  33. NEXIUM [Concomitant]
     Active Substance: ESOMEPRAZOLE MAGNESIUM
     Indication: Gastrooesophageal reflux disease
     Dosage: ONGOING YES
     Route: 048
     Dates: start: 2000

REACTIONS (51)
  - Pneumonia [Recovered/Resolved]
  - Influenza [Recovered/Resolved]
  - Kidney infection [Recovered/Resolved]
  - Pruritus [Recovered/Resolved]
  - Heart rate increased [Recovered/Resolved]
  - Flushing [Recovered/Resolved]
  - Burning sensation [Recovered/Resolved]
  - Oesophageal pain [Recovered/Resolved]
  - Oropharyngeal pain [Not Recovered/Not Resolved]
  - Sinusitis [Recovered/Resolved]
  - Immunodeficiency [Recovered/Resolved]
  - Upper respiratory tract infection [Recovered/Resolved]
  - Anxiety [Unknown]
  - Oxygen saturation decreased [Unknown]
  - Pulmonary mass [Not Recovered/Not Resolved]
  - Herpes zoster [Recovered/Resolved]
  - Diverticulum [Unknown]
  - Fatigue [Unknown]
  - Pyrexia [Recovered/Resolved]
  - Chest discomfort [Unknown]
  - Chronic kidney disease [Recovered/Resolved]
  - Dry skin [Not Recovered/Not Resolved]
  - Asthma [Unknown]
  - Human metapneumovirus test positive [Recovered/Resolved]
  - Hypersensitivity [Not Recovered/Not Resolved]
  - Inflammation [Recovered/Resolved]
  - Thinking abnormal [Not Recovered/Not Resolved]
  - Amnesia [Not Recovered/Not Resolved]
  - Haemoglobin decreased [Not Recovered/Not Resolved]
  - Iron deficiency [Not Recovered/Not Resolved]
  - Irritable bowel syndrome [Not Recovered/Not Resolved]
  - Swelling [Not Recovered/Not Resolved]
  - Musculoskeletal stiffness [Not Recovered/Not Resolved]
  - Movement disorder [Not Recovered/Not Resolved]
  - Blood creatinine increased [Recovered/Resolved]
  - Cough [Recovered/Resolved]
  - Gait disturbance [Not Recovered/Not Resolved]
  - Pain [Recovered/Resolved]
  - Dyspnoea [Not Recovered/Not Resolved]
  - Fall [Unknown]
  - Back pain [Not Recovered/Not Resolved]
  - Cystitis [Recovered/Resolved]
  - Urinary tract infection [Recovered/Resolved]
  - COVID-19 [Recovered/Resolved]
  - Vaccination failure [Unknown]
  - Tooth abscess [Not Recovered/Not Resolved]
  - Dental caries [Recovered/Resolved]
  - Tremor [Not Recovered/Not Resolved]
  - Thermal burn [Not Recovered/Not Resolved]
  - Paraesthesia [Not Recovered/Not Resolved]
  - Breakthrough COVID-19 [Recovered/Resolved]

NARRATIVE: CASE EVENT DATE: 20180101
